FAERS Safety Report 15563996 (Version 2)
Quarter: 2018Q4

REPORT INFORMATION
  Report Type: Report from Study
  Country: US (occurrence: US)
  Receive Date: 20181030
  Receipt Date: 20181224
  Transmission Date: 20190205
  Serious: Yes (Other)
  Sender: FDA-Public Use
  Company Number: PHHY2015US159090

PATIENT
  Age: 19 Year
  Sex: Female

DRUGS (1)
  1. GILENYA [Suspect]
     Active Substance: FINGOLIMOD HYDROCHLORIDE
     Indication: MULTIPLE SCLEROSIS
     Dosage: UNK, QD
     Route: 048

REACTIONS (17)
  - Nervous system disorder [Unknown]
  - Hordeolum [Unknown]
  - Retinal disorder [Unknown]
  - Visual field defect [Unknown]
  - Central nervous system lesion [Unknown]
  - Inflammation [Unknown]
  - Diarrhoea [Unknown]
  - Abnormal loss of weight [Unknown]
  - Lymphocyte count decreased [Unknown]
  - Asthma [Recovered/Resolved]
  - Eye pain [Unknown]
  - Hepatic enzyme increased [Unknown]
  - Skin lesion [Unknown]
  - Retinal degeneration [Unknown]
  - Cholecystitis [Unknown]
  - Malabsorption [Unknown]
  - Pseudopapilloedema [Unknown]

NARRATIVE: CASE EVENT DATE: 20150803
